FAERS Safety Report 8520359 (Version 3)
Quarter: 2012Q4

REPORT INFORMATION
  Report Type: 
  Country: JP (occurrence: JP)
  Receive Date: 20120418
  Receipt Date: 20121218
  Transmission Date: 20130627
  Serious: Yes (Hospitalization)
  Sender: FDA-Public Use
  Company Number: JP-GLAXOSMITHKLINE-B0782252A

PATIENT
  Age: 31 Year
  Sex: Female

DRUGS (4)
  1. LAMICTAL [Suspect]
     Indication: BIPOLAR DISORDER
     Dosage: 25MG Per day
     Route: 048
     Dates: start: 20120202, end: 20120212
  2. PAXIL [Concomitant]
     Indication: DEPRESSION
     Dosage: 20MG Twice per day
     Route: 048
     Dates: start: 20050209
  3. LIMAS [Concomitant]
     Indication: BIPOLAR I DISORDER
     Dosage: 200MG Twice per day
     Route: 048
     Dates: start: 20050406
  4. MYSLEE [Concomitant]
     Indication: INSOMNIA
     Dosage: 10MG Per day
     Route: 048
     Dates: start: 20050118

REACTIONS (5)
  - Drug eruption [Recovered/Resolved]
  - Erythema multiforme [Unknown]
  - Pruritus generalised [Unknown]
  - Rash generalised [Unknown]
  - Pigmentation disorder [Unknown]
